FAERS Safety Report 24849952 (Version 1)
Quarter: 2025Q1

REPORT INFORMATION
  Report Type: Spontaneous
  Country: US (occurrence: None)
  Receive Date: 20250115
  Receipt Date: 20250115
  Transmission Date: 20250408
  Serious: Yes (Hospitalization)
  Sender: FDA-CTU
  Company Number: None

PATIENT
  Age: 72 Year
  Sex: Female
  Weight: 50.85 kg

DRUGS (2)
  1. ROMOSOZUMAB [Suspect]
     Active Substance: ROMOSOZUMAB
     Indication: Osteoporosis
     Route: 058
  2. IBANDRONATE SODIUM [Suspect]
     Active Substance: IBANDRONATE SODIUM

REACTIONS (3)
  - Chest pain [None]
  - Tachycardia [None]
  - Acute myocardial infarction [None]

NARRATIVE: CASE EVENT DATE: 20250105
